FAERS Safety Report 4712433-4 (Version None)
Quarter: 2005Q3

REPORT INFORMATION
  Report Type: 
  Country: None (occurrence: None)
  Receive Date: 20050711
  Receipt Date: 20050613
  Transmission Date: 20060218
  Serious: Yes (Death)
  Sender: FDA-Public Use
  Company Number: 2005SP000846

PATIENT
  Age: 81 Year
  Sex: Female
  Weight: 75.7507 kg

DRUGS (13)
  1. LUNESTA [Suspect]
     Indication: INSOMNIA
     Dosage: 2 MG HS ORAL
     Route: 048
     Dates: start: 20050520
  2. BENICAR [Concomitant]
  3. LANOXIN [Concomitant]
  4. ATENOLOL [Concomitant]
  5. WARFARIN SODIUM [Concomitant]
  6. GLUCOTROL [Concomitant]
  7. CARDIZEM [Concomitant]
  8. MAG-OX [Concomitant]
  9. LASIX [Concomitant]
  10. POTASSIUM CHLORIDE [Concomitant]
  11. FOSAMAX [Concomitant]
  12. LEXAPRO [Concomitant]
  13. METHIONINE [Concomitant]

REACTIONS (1)
  - CARDIAC FAILURE CONGESTIVE [None]
